FAERS Safety Report 8216823-7 (Version None)
Quarter: 2012Q1

REPORT INFORMATION
  Report Type: 
  Country: None (occurrence: None)
  Receive Date: 20120316
  Receipt Date: 20120308
  Transmission Date: 20120608
  Serious: Yes (Hospitalization, Disabling)
  Sender: FDA-Public Use
  Company Number: US-MERCK-1111USA02613

PATIENT
  Age: 82 Year
  Sex: Female
  Weight: 76 kg

DRUGS (6)
  1. FOSAMAX [Suspect]
     Route: 048
     Dates: start: 20010202, end: 20010412
  2. ACTONEL [Suspect]
     Indication: OSTEOPOROSIS
     Route: 048
     Dates: start: 20050101, end: 20090101
  3. FOSAMAX [Suspect]
     Indication: OSTEOPOROSIS
     Route: 048
     Dates: start: 19980101, end: 20050101
  4. ACTONEL [Suspect]
     Indication: OSTEOPENIA
     Route: 048
     Dates: start: 20050101, end: 20090101
  5. FOSAMAX [Suspect]
     Route: 048
     Dates: start: 20010202, end: 20010412
  6. FOSAMAX [Suspect]
     Indication: OSTEOPENIA
     Route: 048
     Dates: start: 19980101, end: 20050101

REACTIONS (13)
  - ARTHRITIS [None]
  - OSTEONECROSIS OF JAW [None]
  - EXOSTOSIS [None]
  - DEVICE RELATED INFECTION [None]
  - DENTAL CARIES [None]
  - DENTAL FISTULA [None]
  - DEVICE FAILURE [None]
  - IMPAIRED HEALING [None]
  - LOCALISED INFECTION [None]
  - MASS [None]
  - SENSITIVITY OF TEETH [None]
  - CYST REMOVAL [None]
  - ORAL INFECTION [None]
